FAERS Safety Report 7000251-6 (Version None)
Quarter: 2010Q3

REPORT INFORMATION
  Report Type: 
  Country: None (occurrence: None)
  Receive Date: 20100920
  Receipt Date: 20070611
  Transmission Date: 20110219
  Serious: Yes (Hospitalization, Other)
  Sender: FDA-Public Use
  Company Number: US-ASTRAZENECA-2006UW12343

PATIENT
  Age: 15217 Day
  Sex: Female
  Weight: 72.1 kg

DRUGS (17)
  1. SEROQUEL [Suspect]
     Indication: BIPOLAR DISORDER
     Route: 048
     Dates: start: 19991201
  2. SEROQUEL [Suspect]
     Indication: DEPRESSION
     Route: 048
     Dates: start: 19991201
  3. SEROQUEL [Suspect]
     Route: 048
     Dates: start: 19991202
  4. SEROQUEL [Suspect]
     Route: 048
     Dates: start: 19991202
  5. RISPERDAL [Concomitant]
     Dates: start: 19990101
  6. METHADONE [Concomitant]
     Indication: ANALGESIC THERAPY
  7. ZYPREXA [Concomitant]
     Dosage: DOES NOT RECALL
  8. TYLENOL [Concomitant]
     Indication: PAIN
     Dosage: 100 MG - 650 MG
     Route: 048
     Dates: start: 19980101
  9. LEXAPRO [Concomitant]
     Indication: DEPRESSION
     Route: 048
     Dates: start: 20021213
  10. KLONOPIN [Concomitant]
     Dosage: 1 MG - 2 MG
     Route: 048
     Dates: start: 19980101
  11. PROZAC [Concomitant]
     Indication: ANXIETY
     Dosage: 10 MG 80 MG
     Route: 048
     Dates: start: 19980101
  12. TRAZODONE HCL [Concomitant]
     Route: 048
     Dates: start: 19980101
  13. MELLARIL [Concomitant]
     Indication: ANXIETY
     Route: 048
     Dates: start: 19990101
  14. AMITRIPTYLINE HCL [Concomitant]
     Indication: PAIN MANAGEMENT
     Route: 048
     Dates: start: 20021119
  15. AMITRIPTYLINE HCL [Concomitant]
     Indication: SLEEP DISORDER
     Route: 048
     Dates: start: 20021119
  16. AMITRIPTYLINE HCL [Concomitant]
     Indication: DEPRESSION
     Route: 048
     Dates: start: 20021119
  17. AMITRIPTYLINE HCL [Concomitant]
     Indication: FIBROMYALGIA
     Route: 048
     Dates: start: 20021119

REACTIONS (9)
  - BACK PAIN [None]
  - DIABETES MELLITUS [None]
  - DIABETIC KETOACIDOSIS [None]
  - FIBROMYALGIA [None]
  - GASTROENTERITIS [None]
  - GLYCOSURIA [None]
  - HYPERGLYCAEMIA [None]
  - PANCREATITIS [None]
  - TEETH BRITTLE [None]
